FAERS Safety Report 6336258-1 (Version None)
Quarter: 2009Q3

REPORT INFORMATION
  Report Type: 
  Country: None (occurrence: None)
  Receive Date: 20090901
  Receipt Date: 20090820
  Transmission Date: 20100115
  Serious: Yes (Hospitalization)
  Sender: FDA-Public Use
  Company Number: FR-PFIZER INC-2009257215

PATIENT
  Age: 81 Year

DRUGS (5)
  1. ALDACTONE [Suspect]
     Dosage: 25 MG, 1X/DAY
     Route: 048
     Dates: end: 20090721
  2. ARICEPT [Suspect]
     Dosage: 10 MG, 1X/DAY
     Route: 048
     Dates: start: 20060101, end: 20090721
  3. DEROXAT [Suspect]
     Dosage: 20 MG, 1X/DAY
     Route: 048
     Dates: end: 20090721
  4. RISPERDAL [Suspect]
     Dosage: 0.5 MG, 1X/DAY
     Route: 048
     Dates: end: 20090721
  5. TEMESTA [Suspect]
     Dosage: 1 MG, 1X/DAY
     Route: 048

REACTIONS (2)
  - FALL [None]
  - SYNCOPE [None]
